FAERS Safety Report 7631693-3 (Version None)
Quarter: 2011Q3

REPORT INFORMATION
  Report Type: 
  Country: None (occurrence: None)
  Receive Date: 20110725
  Receipt Date: 20110218
  Transmission Date: 20111222
  Serious: Yes (Hospitalization)
  Sender: FDA-Public Use
  Company Number: US-BRISTOL-MYERS SQUIBB COMPANY-15559313

PATIENT
  Age: 29 Year
  Sex: Female

DRUGS (8)
  1. WELLBUTRIN [Concomitant]
  2. FIORICET [Concomitant]
  3. VENTOLIN HFA [Concomitant]
  4. CLONAZEPAM [Concomitant]
  5. OMEPRAZOLE [Concomitant]
  6. WARFARIN SODIUM [Suspect]
     Indication: PORTAL VEIN THROMBOSIS
     Dates: start: 20080901
  7. CLARITIN [Concomitant]
  8. FLUTICASONE [Concomitant]

REACTIONS (4)
  - ABDOMINAL PAIN [None]
  - RASH [None]
  - STAPHYLOCOCCAL INFECTION [None]
  - SKIN ULCER [None]
